FAERS Safety Report 10026138 (Version 1)
Quarter: 2014Q1

REPORT INFORMATION
  Report Type: Spontaneous
  Country: US (occurrence: US)
  Receive Date: 20140320
  Receipt Date: 20140320
  Transmission Date: 20141002
  Serious: No
  Sender: FDA-Public Use
  Company Number: US-ALLERGAN-1403811US

PATIENT
  Age: 6 Decade
  Sex: Female

DRUGS (7)
  1. LUMIGAN 0.01% [Suspect]
     Indication: GLAUCOMA
     Dosage: 2 GTT, QHS
     Route: 047
     Dates: start: 20140218
  2. SOOTHE                             /00256502/ [Concomitant]
     Indication: EYE LUBRICATION THERAPY
     Dosage: 2 GTT, PRN
     Route: 047
     Dates: start: 201308
  3. THERATEARS [Concomitant]
     Indication: EYE LUBRICATION THERAPY
     Dosage: 2 GTT, PRN
     Route: 047
     Dates: start: 20140220
  4. EYE OINTMENT NOS [Concomitant]
     Indication: EYE LUBRICATION THERAPY
     Dosage: UNK, QHS
     Route: 047
  5. NEURONTIN [Concomitant]
     Indication: FIBROMYALGIA
     Dosage: UNK UNK, QD
     Route: 048
  6. LIDODERM [Concomitant]
     Indication: INTERVERTEBRAL DISC PROTRUSION
     Dosage: UNK UNK, QD
     Route: 062
  7. TYLENOL                            /00020001/ [Concomitant]
     Indication: FIBROMYALGIA
     Dosage: UNK UNK, QD
     Route: 048

REACTIONS (6)
  - Eyelid skin dryness [Not Recovered/Not Resolved]
  - Eyelid exfoliation [Not Recovered/Not Resolved]
  - Eyelid irritation [Not Recovered/Not Resolved]
  - Foreign body sensation in eyes [Not Recovered/Not Resolved]
  - Eye irritation [Not Recovered/Not Resolved]
  - Ocular hyperaemia [Not Recovered/Not Resolved]
